FAERS Safety Report 6600863-5 (Version None)
Quarter: 2010Q1

REPORT INFORMATION
  Report Type: 
  Country: None (occurrence: None)
  Receive Date: 20100225
  Receipt Date: 20091203
  Transmission Date: 20100710
  Serious: No
  Sender: FDA-Public Use
  Company Number: A0817284A

PATIENT
  Age: 29 Year
  Sex: Female

DRUGS (4)
  1. LAMICTAL CD [Suspect]
     Indication: DRUG USE FOR UNKNOWN INDICATION
     Dosage: 250MG UNKNOWN
     Route: 048
     Dates: start: 20091111, end: 20091119
  2. OMEGA 3 FATTY ACID [Concomitant]
     Route: 048
  3. EFFEXOR XR [Concomitant]
     Indication: DEPRESSION
     Dosage: 150MG PER DAY
     Route: 048
  4. ROZEREM [Concomitant]
     Indication: INSOMNIA
     Route: 048

REACTIONS (3)
  - DISCOMFORT [None]
  - PAIN [None]
  - SENSORY DISTURBANCE [None]
